FAERS Safety Report 5844322-6 (Version None)
Quarter: 2008Q3

REPORT INFORMATION
  Report Type: 
  Country: None (occurrence: None)
  Receive Date: 20080813
  Receipt Date: 20080806
  Transmission Date: 20090109
  Serious: Yes (Hospitalization)
  Sender: FDA-Public Use
  Company Number: US-BOEHRINGER INGELHEIM GMBH, GERMANY-2008-BP-04602BP

PATIENT
  Sex: Female
  Weight: 108 kg

DRUGS (9)
  1. MIRAPEX [Suspect]
     Indication: RESTLESS LEGS SYNDROME
     Route: 048
     Dates: start: 20060101
  2. METFORMIN HCL [Concomitant]
     Indication: DIABETES MELLITUS
  3. JANUVIA [Concomitant]
     Indication: DIABETES MELLITUS
  4. PRAVACHOL [Concomitant]
     Indication: BLOOD CHOLESTEROL INCREASED
  5. LIPITOR [Concomitant]
     Indication: BLOOD CHOLESTEROL INCREASED
  6. RANITIDINE [Concomitant]
     Indication: DYSPEPSIA
  7. VERAMIST [Concomitant]
     Indication: SINUS CONGESTION
  8. LEVOXYL [Concomitant]
     Indication: THYROID DISORDER
  9. LISINOPRIL [Concomitant]

REACTIONS (5)
  - BENIGN NEOPLASM OF THYROID GLAND [None]
  - FATIGUE [None]
  - HYPOAESTHESIA [None]
  - PAIN IN EXTREMITY [None]
  - SCIATICA [None]
